FAERS Safety Report 25910543 (Version 2)
Quarter: 2025Q4

REPORT INFORMATION
  Report Type: Spontaneous
  Country: CA (occurrence: CA)
  Receive Date: 20251013
  Receipt Date: 20251104
  Transmission Date: 20260119
  Serious: Yes (Other)
  Sender: CELLTRION
  Company Number: CA-CELLTRION INC.-2025CA006311

PATIENT

DRUGS (1)
  1. INFLIXIMAB [Suspect]
     Active Substance: INFLIXIMAB
     Indication: Crohn^s disease
     Dosage: MAINTENANCE - 120 MG - SC (SUBCUTANEOUS) EVERY 14 DAYS/ 120 MG/ML Q 14 DAYS
     Route: 058
     Dates: start: 20241016

REACTIONS (7)
  - Crohn^s disease [Unknown]
  - Condition aggravated [Unknown]
  - Concussion [Unknown]
  - Back injury [Unknown]
  - Weight decreased [Unknown]
  - Henoch-Schonlein purpura [Unknown]
  - Therapy interrupted [Unknown]

NARRATIVE: CASE EVENT DATE: 20250101
